FAERS Safety Report 5526280-7 (Version None)
Quarter: 2007Q4

REPORT INFORMATION
  Report Type: 
  Country: None (occurrence: None)
  Receive Date: 20071121
  Receipt Date: 20071121
  Transmission Date: 20080405
  Serious: Yes (Hospitalization)
  Sender: FDA-Public Use
  Company Number: None

PATIENT
  Age: 59 Year
  Sex: Male

DRUGS (2)
  1. TRIMETHOPRIM-SULFAMETHOXAZOLE [Suspect]
     Indication: ATRIAL FIBRILLATION
     Dosage: DSTAB  BID  PO
     Route: 048
     Dates: start: 20070711, end: 20070712
  2. TRIMETHOPRIM-SULFAMETHOXAZOLE [Suspect]
     Indication: URINARY TRACT DISORDER
     Dosage: DSTAB  BID  PO
     Route: 048
     Dates: start: 20070711, end: 20070712

REACTIONS (10)
  - BALANCE DISORDER [None]
  - BLINDNESS [None]
  - DISORIENTATION [None]
  - DIZZINESS [None]
  - FATIGUE [None]
  - HYPOTENSION [None]
  - PRURITUS [None]
  - RASH [None]
  - URINARY RETENTION [None]
  - URTICARIA [None]
